FAERS Safety Report 7987350-7 (Version None)
Quarter: 2011Q4

REPORT INFORMATION
  Report Type: 
  Country: None (occurrence: None)
  Receive Date: 20111216
  Receipt Date: 20111209
  Transmission Date: 20120403
  Serious: Yes (Hospitalization)
  Sender: FDA-Public Use
  Company Number: GR-JNJFOC-20100704823

PATIENT
  Sex: Male
  Weight: 105 kg

DRUGS (2)
  1. METHOTREXATE [Concomitant]
     Indication: PSORIASIS
     Dates: start: 20100101, end: 20100625
  2. STELARA [Suspect]
     Indication: PSORIASIS
     Route: 058
     Dates: start: 20100625

REACTIONS (1)
  - HEPATITIS B [None]
